FAERS Safety Report 15998521 (Version 2)
Quarter: 2019Q1

REPORT INFORMATION
  Report Type: Spontaneous
  Country: NL (occurrence: NL)
  Receive Date: 20190223
  Receipt Date: 20190328
  Transmission Date: 20190418
  Serious: Yes (Other)
  Sender: FDA-Public Use
  Company Number: NL-ACCORD-107995

PATIENT
  Age: 19 Year
  Sex: Male

DRUGS (5)
  1. AMOXICILLIN/CLAVULANIC ACID [Concomitant]
     Indication: OSTEOMYELITIS
     Dosage: UNK
     Route: 065
  2. MYCOPHENOLIC ACID. [Suspect]
     Active Substance: MYCOPHENOLIC ACID
     Indication: IMMUNOSUPPRESSION
     Dosage: UNK
     Route: 065
  3. PREDNISONE. [Suspect]
     Active Substance: PREDNISONE
     Indication: IMMUNOSUPPRESSION
     Dosage: UNK
     Route: 065
  4. CICLOSPORIN [Suspect]
     Active Substance: CYCLOSPORINE
     Indication: IMMUNOSUPPRESSION
     Dosage: UNK
     Route: 065
  5. AMPHOTERICIN B/AMPHOTERICIN B/LIPOSOME [Concomitant]
     Dosage: 5 MG/KG

REACTIONS (3)
  - Sinusitis [Recovered/Resolved]
  - Aspergillus infection [Unknown]
  - Osteomyelitis [Unknown]
